APPROVED DRUG PRODUCT: H-CORT
Active Ingredient: HYDROCORTISONE
Strength: 0.5%
Dosage Form/Route: LOTION;TOPICAL
Application: A086824 | Product #001
Applicant: PHARMACEUTICAL ASSOC INC DIV BEACH PRODUCTS
Approved: Approved Prior to Jan 1, 1982 | RLD: No | RS: No | Type: DISCN